FAERS Safety Report 8363351-4 (Version None)
Quarter: 2012Q1

REPORT INFORMATION
  Report Type: 
  Country: None (occurrence: None)
  Receive Date: 20120323
  Receipt Date: 20110912
  Transmission Date: 20120608
  Serious: Yes (Other)
  Sender: FDA-Public Use
  Company Number: 163-21880-11052124

PATIENT
  Age: 69 Year
  Sex: Male
  Weight: 77.1115 kg

DRUGS (7)
  1. ULTRACET [Concomitant]
  2. ASPIRIN [Concomitant]
  3. REVLIMID [Suspect]
     Indication: MYELOFIBROSIS
     Dosage: 5 MG, 1 IN 1 D, PO; 5 MG, 2 OUT OF 2 DAYS, PO
     Route: 048
     Dates: start: 20110608, end: 20110629
  4. REVLIMID [Suspect]
     Indication: MYELODYSPLASTIC SYNDROME
     Dosage: 5 MG, 1 IN 1 D, PO; 5 MG, 2 OUT OF 2 DAYS, PO
     Route: 048
     Dates: start: 20110608, end: 20110629
  5. REVLIMID [Suspect]
     Indication: MYELOFIBROSIS
     Dosage: 5 MG, 1 IN 1 D, PO; 5 MG, 2 OUT OF 2 DAYS, PO
     Route: 048
     Dates: start: 20110420, end: 20110524
  6. REVLIMID [Suspect]
     Indication: MYELODYSPLASTIC SYNDROME
     Dosage: 5 MG, 1 IN 1 D, PO; 5 MG, 2 OUT OF 2 DAYS, PO
     Route: 048
     Dates: start: 20110420, end: 20110524
  7. PREDNISONE [Concomitant]

REACTIONS (5)
  - WHITE BLOOD CELL COUNT DECREASED [None]
  - DRUG INEFFECTIVE [None]
  - HAEMOGLOBIN DECREASED [None]
  - DYSPNOEA [None]
  - DIZZINESS [None]
